FAERS Safety Report 13158015 (Version 1)
Quarter: 2017Q1

REPORT INFORMATION
  Report Type: Spontaneous
  Country: US (occurrence: US)
  Receive Date: 20170124
  Receipt Date: 20170124
  Transmission Date: 20170428
  Serious: No
  Sender: FDA-Public Use
  Company Number: None

PATIENT
  Sex: Female

DRUGS (6)
  1. PROAIR HFA [Concomitant]
     Active Substance: ALBUTEROL SULFATE
  2. PAROXETINE. [Concomitant]
     Active Substance: PAROXETINE
  3. BETASERON [Suspect]
     Active Substance: INTERFERON BETA-1B
     Indication: MULTIPLE SCLEROSIS
     Dosage: ?          OTHER FREQUENCY:EVERY OTHER DAY;?
     Route: 058
     Dates: start: 20110727
  4. BACLOFEN. [Concomitant]
     Active Substance: BACLOFEN
  5. OXYBUTYNIN CHLORIDE. [Concomitant]
     Active Substance: OXYBUTYNIN CHLORIDE
  6. NAPROSYN [Concomitant]
     Active Substance: NAPROXEN

REACTIONS (1)
  - Influenza like illness [None]
